FAERS Safety Report 22046974 (Version 1)
Quarter: 2023Q1

REPORT INFORMATION
  Report Type: Spontaneous
  Country: US (occurrence: US)
  Receive Date: 20230301
  Receipt Date: 20230301
  Transmission Date: 20230417
  Serious: Yes (Hospitalization, Other)
  Sender: FDA-Public Use
  Company Number: US-BRISTOL-MYERS SQUIBB COMPANY-2023-029675

PATIENT
  Age: 87 Year
  Sex: Female
  Weight: 113.4 kg

DRUGS (1)
  1. ELIQUIS [Suspect]
     Active Substance: APIXABAN
     Indication: Cerebrovascular accident prophylaxis
     Dosage: DOSE : 5 MG;     FREQ : BID

REACTIONS (4)
  - Atrial fibrillation [Unknown]
  - Lung neoplasm malignant [Unknown]
  - Brain neoplasm malignant [Unknown]
  - Thyroid cancer [Unknown]

NARRATIVE: CASE EVENT DATE: 20230103
